FAERS Safety Report 21588384 (Version 4)
Quarter: 2023Q2

REPORT INFORMATION
  Report Type: Report from Study
  Country: US (occurrence: US)
  Receive Date: 20221114
  Receipt Date: 20230403
  Transmission Date: 20230721
  Serious: No
  Sender: FDA-Public Use
  Company Number: US-ABBVIE-22K-163-4389230-00

PATIENT
  Sex: Male

DRUGS (4)
  1. IMBRUVICA [Suspect]
     Active Substance: IBRUTINIB
     Indication: Chronic lymphocytic leukaemia
     Dosage: FIRST ADMIN DATE-2022
     Route: 048
  2. IMBRUVICA [Suspect]
     Active Substance: IBRUTINIB
     Indication: Chronic lymphocytic leukaemia
     Dosage: FIRST ADMIN DATE-FEB 2022?LAST ADMIN DATE-2022
     Route: 048
     Dates: start: 202202
  3. IMBRUVICA [Suspect]
     Active Substance: IBRUTINIB
     Indication: Chronic lymphocytic leukaemia
     Dosage: FIRST ADMIN DATE-2022?LAST ADMIN DATE-2022
     Route: 048
  4. IMBRUVICA [Suspect]
     Active Substance: IBRUTINIB
     Indication: Chronic lymphocytic leukaemia
     Dosage: FIRST ADMIN DATE-2022?LAST ADMIN DATE-2022
     Route: 048
     Dates: start: 202202

REACTIONS (12)
  - Contusion [Unknown]
  - White blood cell count abnormal [Unknown]
  - Hair growth abnormal [Unknown]
  - Nail growth abnormal [Unknown]
  - White blood cell count abnormal [Unknown]
  - Onychoclasis [Unknown]
  - Pain [Unknown]
  - Folliculitis [Unknown]
  - White blood cell count increased [Unknown]
  - Wound [Unknown]
  - Impaired healing [Unknown]
  - Nail disorder [Unknown]
